FAERS Safety Report 7056542-6 (Version None)
Quarter: 2010Q4

REPORT INFORMATION
  Report Type: 
  Country: None (occurrence: None)
  Receive Date: 20101018
  Receipt Date: 20101005
  Transmission Date: 20110411
  Serious: Yes (Other)
  Sender: FDA-Public Use
  Company Number: BR-GDP-10409046

PATIENT
  Sex: Female
  Weight: 50 kg

DRUGS (1)
  1. EPIDUO [Suspect]
     Indication: RASH PAPULAR
     Dosage: (1 DF QD TOPICAL)
     Route: 061
     Dates: start: 20100917, end: 20100919

REACTIONS (6)
  - DRY SKIN [None]
  - ERYTHEMA [None]
  - HYPERSENSITIVITY [None]
  - PAPULE [None]
  - PRURITUS [None]
  - SWELLING FACE [None]
